FAERS Safety Report 7694398-9 (Version None)
Quarter: 2011Q3

REPORT INFORMATION
  Report Type: 
  Country: None (occurrence: None)
  Receive Date: 20110819
  Receipt Date: 20110812
  Transmission Date: 20111222
  Serious: Yes (Hospitalization, Other)
  Sender: FDA-Public Use
  Company Number: JP-PFIZER INC-2011102589

PATIENT
  Age: 69 Year
  Sex: Male
  Weight: 48.5 kg

DRUGS (10)
  1. SUTENT [Suspect]
     Indication: RENAL CELL CARCINOMA
     Dosage: 37.5 MG, 1X/DAY
     Route: 048
     Dates: start: 20110421, end: 20110506
  2. MUCODYNE [Concomitant]
     Dosage: 500 MG, 3X/DAY
     Route: 048
  3. ALLEGRA [Concomitant]
     Dosage: 60 MG, 2X/DAY
     Route: 048
  4. CALBLOCK [Concomitant]
     Dosage: 16 MG, 1X/DAY
     Route: 048
  5. OMEPRAZOLE [Concomitant]
     Dosage: 10 MG, 1X/DAY
     Route: 048
  6. MUCOSTA [Concomitant]
     Dosage: 100 MG, 3X/DAY
     Route: 048
  7. TRANEXAMIC ACID [Concomitant]
     Dosage: 250 MG, 2X/DAY
     Route: 048
  8. GLAKAY [Concomitant]
     Dosage: 15 MG, 2X/DAY
     Route: 048
  9. SINGULAIR [Concomitant]
     Dosage: 10 MG, 1X/DAY
     Route: 048
  10. MICARDIS [Concomitant]
     Dosage: 40 MG, 1X/DAY
     Route: 048

REACTIONS (1)
  - INTERSTITIAL LUNG DISEASE [None]
